FAERS Safety Report 13301084 (Version 1)
Quarter: 2017Q1

REPORT INFORMATION
  Report Type: Spontaneous
  Country: US (occurrence: US)
  Receive Date: 20170306
  Receipt Date: 20170306
  Transmission Date: 20170428
  Serious: No
  Sender: FDA-Public Use
  Company Number: None

PATIENT
  Age: 54 Year
  Sex: Female
  Weight: 89.1 kg

DRUGS (10)
  1. VITAMIN D [Concomitant]
     Active Substance: CHOLECALCIFEROL
  2. HTGZ [Concomitant]
  3. TOPAMAX [Concomitant]
     Active Substance: TOPIRAMATE
  4. IBUPROFEN. [Concomitant]
     Active Substance: IBUPROFEN
  5. NORCO [Concomitant]
     Active Substance: ACETAMINOPHEN\HYDROCODONE BITARTRATE
  6. METHOCARBAMOL. [Concomitant]
     Active Substance: METHOCARBAMOL
  7. TRAMADOL. [Suspect]
     Active Substance: TRAMADOL
     Indication: MUSCLE STRAIN
     Dosage: ?          QUANTITY:1 TABLET(S);?
     Route: 048
     Dates: start: 20170224, end: 20170228
  8. CYCLOBENZOPRINE [Concomitant]
     Active Substance: CYCLOBENZAPRINE
  9. FOLTABS [Concomitant]
  10. LIDOCAINE. [Concomitant]
     Active Substance: LIDOCAINE

REACTIONS (8)
  - Dizziness [None]
  - Asthenia [None]
  - Feeling cold [None]
  - Cold sweat [None]
  - Presyncope [None]
  - Tremor [None]
  - Confusional state [None]
  - Lethargy [None]

NARRATIVE: CASE EVENT DATE: 20170228
